FAERS Safety Report 25607430 (Version 1)
Quarter: 2025Q3

REPORT INFORMATION
  Report Type: Spontaneous
  Country: US (occurrence: US)
  Receive Date: 20250725
  Receipt Date: 20250725
  Transmission Date: 20251021
  Serious: Yes (Other)
  Sender: TEVA
  Company Number: US-TEVA-VS-3354293

PATIENT

DRUGS (2)
  1. AUSTEDO [Suspect]
     Active Substance: DEUTETRABENAZINE
     Indication: Tardive dyskinesia
     Route: 065
  2. COGENTIN [Suspect]
     Active Substance: BENZTROPINE MESYLATE
     Indication: Parkinsonism
     Route: 065

REACTIONS (1)
  - Psychotic disorder [Unknown]
